FAERS Safety Report 9324637 (Version 3)
Quarter: 2014Q1

REPORT INFORMATION
  Report Type: Spontaneous
  Country: US (occurrence: US)
  Receive Date: 20130603
  Receipt Date: 20140219
  Transmission Date: 20141002
  Serious: Yes (Hospitalization)
  Sender: FDA-Public Use
  Company Number: US-B.I. PHARMACEUTICALS,INC./RIDGEFIELD-2013-BI-15315BP

PATIENT
  Age: 75 Year
  Sex: Female
  Weight: 70.76 kg

DRUGS (16)
  1. PRADAXA [Suspect]
     Indication: ATRIAL FIBRILLATION
     Dosage: 300 MG
     Route: 048
     Dates: start: 20110530, end: 20111028
  2. DIGOXIN [Concomitant]
  3. EVISTA [Concomitant]
     Dosage: 60 MG
     Route: 048
  4. CIMETIDINE [Concomitant]
     Dosage: 800 MG
     Route: 048
  5. SIMVASTATIN [Concomitant]
     Dosage: 40 MG
     Route: 048
  6. METOPROLOL [Concomitant]
     Dosage: 100 MG
     Route: 048
  7. HYDROCHLOROTHIAZIDE/LISINOPRIL [Concomitant]
     Route: 048
  8. ALENDRONATE [Concomitant]
     Route: 048
  9. SPIRIVA INHALER [Concomitant]
     Dosage: 18 MCG
     Route: 055
  10. VERAPAMIL [Concomitant]
  11. MIRALAX [Concomitant]
     Indication: CONSTIPATION
     Route: 048
  12. ALBUTEROL [Concomitant]
  13. CALCIUM CARBONATE [Concomitant]
     Dosage: 1500 MG
     Route: 048
  14. LUTEIN [Concomitant]
  15. MULTIVITAMIN [Concomitant]
     Route: 048
  16. OMEGA 3 POLYUNSATURATED FATTY ACID [Concomitant]
     Dosage: 3000 MG
     Route: 048

REACTIONS (3)
  - Gastrointestinal haemorrhage [Recovered/Resolved]
  - Haemorrhagic anaemia [Unknown]
  - Blood urine present [Unknown]
